FAERS Safety Report 8578460-4 (Version None)
Quarter: 2012Q3

REPORT INFORMATION
  Report Type: 
  Country: None (occurrence: None)
  Receive Date: 20120808
  Receipt Date: 20120802
  Transmission Date: 20120928
  Serious: Yes (Hospitalization)
  Sender: FDA-Public Use
  Company Number: US-NAPPMUNDI-USA-2012-0091027

PATIENT
  Sex: Female

DRUGS (1)
  1. OXYCONTIN [Suspect]
     Indication: ARTHRALGIA
     Dosage: 20 MG, 2 TO 4 TABS EVERY 12 HOURS

REACTIONS (2)
  - PNEUMONIA [None]
  - LOCALISED INFECTION [None]
